FAERS Safety Report 25839395 (Version 1)
Quarter: 2025Q3

REPORT INFORMATION
  Report Type: Spontaneous
  Country: EU (occurrence: EU)
  Receive Date: 20250924
  Receipt Date: 20250924
  Transmission Date: 20251020
  Serious: Yes (Death, Other)
  Sender: AMGEN
  Company Number: EU-AMGEN-ITASP2025186007

PATIENT

DRUGS (5)
  1. CARFILZOMIB [Suspect]
     Active Substance: CARFILZOMIB
     Indication: Plasma cell myeloma refractory
     Route: 065
  2. LENALIDOMIDE [Concomitant]
     Active Substance: LENALIDOMIDE
     Indication: Plasma cell myeloma refractory
     Route: 065
  3. DEXAMETHASONE [Concomitant]
     Active Substance: DEXAMETHASONE
     Indication: Plasma cell myeloma refractory
     Route: 065
  4. BORTEZOMIB [Concomitant]
     Active Substance: BORTEZOMIB
     Indication: Plasma cell myeloma refractory
     Route: 065
  5. DOXORUBICIN [Concomitant]
     Active Substance: DOXORUBICIN
     Indication: Plasma cell myeloma refractory
     Route: 065

REACTIONS (14)
  - Disease progression [Fatal]
  - Infection [Fatal]
  - Haematotoxicity [Unknown]
  - Hypertension [Unknown]
  - Thrombocytopenia [Unknown]
  - Neutropenia [Unknown]
  - Tachyarrhythmia [Unknown]
  - Stress cardiomyopathy [Unknown]
  - Upper respiratory tract infection [Unknown]
  - Pneumonia [Unknown]
  - Bacteraemia [Unknown]
  - Toxicity to various agents [Unknown]
  - Anaemia [Unknown]
  - Therapy partial responder [Unknown]
